FAERS Safety Report 14238519 (Version 3)
Quarter: 2018Q3

REPORT INFORMATION
  Report Type: Spontaneous
  Country: US (occurrence: US)
  Receive Date: 20171130
  Receipt Date: 20180806
  Transmission Date: 20181010
  Serious: Yes (Death, Other)
  Sender: FDA-Public Use
  Company Number: PHEH2017US037872

PATIENT
  Age: 66 Year
  Sex: Male

DRUGS (4)
  1. AFINITOR [Suspect]
     Active Substance: EVEROLIMUS
     Indication: RENAL CANCER
     Route: 065
  2. LENVIMA [Suspect]
     Active Substance: LENVATINIB
     Indication: METASTASES TO LUNG
  3. LENVIMA [Suspect]
     Active Substance: LENVATINIB
     Indication: RENAL CANCER
  4. LENVIMA [Suspect]
     Active Substance: LENVATINIB
     Indication: BRAIN NEOPLASM MALIGNANT
     Dosage: 14 MG, QD (FOR 4 WEEKS, OFF FOR 2 WEEKS)
     Route: 048
     Dates: start: 20161214

REACTIONS (8)
  - Brain neoplasm [Unknown]
  - Feeling cold [Unknown]
  - Death [Fatal]
  - Hypertension [Unknown]
  - Diarrhoea [Unknown]
  - Dysphonia [Unknown]
  - Hallucination [Unknown]
  - Vomiting [Unknown]

NARRATIVE: CASE EVENT DATE: 20180618
